FAERS Safety Report 14503258 (Version 2)
Quarter: 2018Q1

REPORT INFORMATION
  Report Type: Spontaneous
  Country: US (occurrence: US)
  Receive Date: 20180208
  Receipt Date: 20180313
  Transmission Date: 20180509
  Serious: Yes (Hospitalization)
  Sender: FDA-Public Use
  Company Number: US-ASTRAZENECA-2018SE15021

PATIENT
  Age: 10 Month
  Sex: Female
  Weight: 6.9 kg

DRUGS (1)
  1. SYNAGIS [Suspect]
     Active Substance: PALIVIZUMAB
     Indication: ANTIVIRAL PROPHYLAXIS
     Route: 030
     Dates: start: 20171115

REACTIONS (4)
  - Drug dose omission [Unknown]
  - Bronchiolitis [Unknown]
  - Respiratory distress [Unknown]
  - Respiratory syncytial virus test positive [Not Recovered/Not Resolved]

NARRATIVE: CASE EVENT DATE: 201801
